FAERS Safety Report 9049900 (Version 1)
Quarter: 2013Q1

REPORT INFORMATION
  Report Type: Spontaneous
  Country: IL (occurrence: IL)
  Receive Date: 20130205
  Receipt Date: 20130205
  Transmission Date: 20140127
  Serious: Yes (Hospitalization)
  Sender: FDA-Public Use
  Company Number: IL-AMGEN-ISRSP2013006930

PATIENT
  Age: 30 Year
  Sex: Female

DRUGS (3)
  1. NEULASTIM [Suspect]
     Indication: PROPHYLAXIS
     Dosage: UNK
     Route: 065
  2. CYCLOPHOSPHAMIDE [Concomitant]
     Indication: BREAST CANCER
     Dosage: UNK, Q2WK
  3. DOXORUBICIN /00330902/ [Concomitant]
     Indication: BREAST CANCER
     Dosage: UNK, Q2WK

REACTIONS (1)
  - Febrile neutropenia [Recovered/Resolved]
